FAERS Safety Report 4294579-0 (Version None)
Quarter: 2004Q1

REPORT INFORMATION
  Report Type: 
  Country: None (occurrence: None)
  Receive Date: 20040211
  Receipt Date: 20040204
  Transmission Date: 20041129
  Serious: Yes (Hospitalization)
  Sender: FDA-Public Use
  Company Number: TAP2003Q02031

PATIENT
  Age: 48 Year
  Sex: Male

DRUGS (3)
  1. PREVACID [Suspect]
     Indication: OESOPHAGEAL ULCER
     Dosage: 30 MG
     Dates: start: 20030510, end: 20030828
  2. INDOMETHACIN [Suspect]
     Indication: RHEUMATOID ARTHRITIS
     Dosage: 100 MG, 1 IN 1 D
     Dates: start: 19820101
  3. UNSPECIFIED NSAID'S (NSAID'S) [Suspect]

REACTIONS (5)
  - COLITIS COLLAGENOUS [None]
  - DEHYDRATION [None]
  - DRUG INTERACTION [None]
  - LARGE INTESTINAL ULCER [None]
  - WEIGHT DECREASED [None]
